FAERS Safety Report 10220404 (Version 1)
Quarter: 2014Q2

REPORT INFORMATION
  Report Type: Report from Study
  Country: US (occurrence: US)
  Receive Date: 20140606
  Receipt Date: 20140606
  Transmission Date: 20141212
  Serious: Yes (Hospitalization)
  Sender: FDA-Public Use
  Company Number: US-BIOGENIDEC-2014BI053565

PATIENT
  Age: 62 Year
  Sex: Female

DRUGS (1)
  1. TYSABRI [Suspect]
     Indication: MULTIPLE SCLEROSIS
     Route: 042
     Dates: start: 20090714

REACTIONS (7)
  - Hernia repair [Recovered/Resolved with Sequelae]
  - Central venous catheterisation [Recovered/Resolved]
  - Staphylococcal infection [Not Recovered/Not Resolved]
  - Device issue [Recovered/Resolved]
  - Mobility decreased [Not Recovered/Not Resolved]
  - Post procedural complication [Not Recovered/Not Resolved]
  - Influenza [Recovered/Resolved]
